FAERS Safety Report 7396408-5 (Version None)
Quarter: 2011Q2

REPORT INFORMATION
  Report Type: 
  Country: None (occurrence: None)
  Receive Date: 20110406
  Receipt Date: 20110330
  Transmission Date: 20111010
  Serious: Yes (Disabling)
  Sender: FDA-Public Use
  Company Number: BR-ABBOTT-11P-020-0715465-00

PATIENT
  Sex: Male
  Weight: 74 kg

DRUGS (4)
  1. AKINETON [Suspect]
     Indication: NERVOUS SYSTEM DISORDER
  2. AKINETON [Suspect]
     Indication: DIZZINESS
  3. HALOPERIDOL [Concomitant]
     Indication: DIZZINESS
  4. HALOPERIDOL [Concomitant]
     Indication: NERVOUS SYSTEM DISORDER
     Dosage: DAILY DOSE: 18 DROPS
     Route: 048

REACTIONS (3)
  - ABASIA [None]
  - PARALYSIS [None]
  - NEURALGIA [None]
